FAERS Safety Report 24117707 (Version 2)
Quarter: 2024Q3

REPORT INFORMATION
  Report Type: Spontaneous
  Country: US (occurrence: US)
  Receive Date: 20240722
  Receipt Date: 20240729
  Transmission Date: 20241017
  Serious: No
  Sender: SANOFI AVENTIS
  Company Number: US-SA-SAC20240717001375

PATIENT
  Age: 61 Year
  Sex: Male

DRUGS (2)
  1. ALPROLIX [Suspect]
     Active Substance: EFTRENONACOG ALFA
     Dosage: 4990 U, QW (EVERY FRIDAY)
     Route: 042
  2. ALPROLIX [Suspect]
     Active Substance: EFTRENONACOG ALFA
     Dosage: 4990 U, QW (EVERY FRIDAY)
     Route: 042

REACTIONS (2)
  - Poor venous access [Unknown]
  - Haemorrhage [Recovered/Resolved]

NARRATIVE: CASE EVENT DATE: 20240712
